FAERS Safety Report 16966383 (Version 1)
Quarter: 2019Q4

REPORT INFORMATION
  Report Type: Report from Study
  Country: DE (occurrence: DE)
  Receive Date: 20191028
  Receipt Date: 20191028
  Transmission Date: 20200122
  Serious: Yes (Hospitalization, Other)
  Sender: FDA-Public Use
  Company Number: DE-MYLANLABS-2019M1100975

PATIENT
  Age: 51 Year
  Sex: Female
  Weight: 41.7 kg

DRUGS (6)
  1. LETROZOLE. [Suspect]
     Active Substance: LETROZOLE
     Dosage: UNK
     Route: 048
     Dates: start: 20180329
  2. PERTUZUMAB. [Suspect]
     Active Substance: PERTUZUMAB
     Indication: HER-2 POSITIVE BREAST CANCER
     Dosage: 420 MILLIGRAM
     Route: 042
     Dates: start: 20170208
  3. DOCETAXEL. [Suspect]
     Active Substance: DOCETAXEL
     Indication: HER-2 POSITIVE BREAST CANCER
     Dosage: 1 UNK, Q3W
     Route: 065
  4. PERTUZUMAB. [Suspect]
     Active Substance: PERTUZUMAB
     Dosage: UNK
     Dates: start: 20180424
  5. LETROZOLE. [Suspect]
     Active Substance: LETROZOLE
     Indication: BREAST CANCER METASTATIC
     Dosage: 2.5 MILLIGRAM, QD
     Route: 048
     Dates: start: 20170208
  6. TRASTUZUMAB. [Suspect]
     Active Substance: TRASTUZUMAB
     Indication: HER-2 POSITIVE BREAST CANCER
     Dosage: 252 MILLIGRAM
     Route: 042
     Dates: start: 20170208

REACTIONS (12)
  - Metastases to central nervous system [Unknown]
  - Insomnia [Unknown]
  - Gastritis [Recovered/Resolved]
  - Neuropathy peripheral [Unknown]
  - Gamma-glutamyltransferase increased [Unknown]
  - Aspartate aminotransferase increased [Unknown]
  - Alanine aminotransferase increased [Unknown]
  - Pain [Unknown]
  - Fatigue [Unknown]
  - Arthralgia [Unknown]
  - Nausea [Not Recovered/Not Resolved]
  - Headache [Not Recovered/Not Resolved]

NARRATIVE: CASE EVENT DATE: 20170208
